FAERS Safety Report 19516718 (Version 1)
Quarter: 2021Q3

REPORT INFORMATION
  Report Type: Spontaneous
  Country: US (occurrence: US)
  Receive Date: 20210711
  Receipt Date: 20210711
  Transmission Date: 20211014
  Serious: No
  Sender: FDA-Public Use
  Company Number: US-ASTRAZENECA-2021A569609

PATIENT
  Age: 79 Year
  Sex: Female

DRUGS (1)
  1. TAGRISSO [Suspect]
     Active Substance: OSIMERTINIB
     Dosage: UNKNOWN
     Route: 048

REACTIONS (3)
  - Hypersomnia [Unknown]
  - Fatigue [Unknown]
  - Depressed mood [Unknown]
